FAERS Safety Report 7133298-X (Version None)
Quarter: 2010Q4

REPORT INFORMATION
  Report Type: 
  Country: None (occurrence: None)
  Receive Date: 20101202
  Receipt Date: 20101121
  Transmission Date: 20110411
  Serious: Yes (Other)
  Sender: FDA-Public Use
  Company Number: US-PFIZER INC-2010059363

PATIENT
  Sex: Female

DRUGS (6)
  1. LYRICA [Suspect]
     Dosage: 50 MG, 3X/DAY
     Dates: start: 20090831
  2. DARVOCET-N 100 [Concomitant]
     Dosage: UNK
     Dates: start: 20090831
  3. LORTAB [Concomitant]
     Dosage: 7.5/500 MG TWICE DAILY AS NEEDED
  4. ACETAMINOPHEN AND HYDROCODONE BITARTRATE [Concomitant]
     Dosage: 7.5/500 EVERY 4-6 HOURS AS NEEDED
     Dates: start: 20091015
  5. IBUPROFEN [Concomitant]
     Dosage: 200 MG, 3X/DAY
  6. INDERAL [Concomitant]
     Dosage: 20 MG, 3X/DAY

REACTIONS (7)
  - CARDIAC MURMUR [None]
  - CHEST PAIN [None]
  - DYSPNOEA [None]
  - JOINT STIFFNESS [None]
  - JOINT SWELLING [None]
  - MUSCULOSKELETAL STIFFNESS [None]
  - OEDEMA PERIPHERAL [None]
